FAERS Safety Report 5584174-5 (Version None)
Quarter: 2008Q1

REPORT INFORMATION
  Report Type: 
  Country: None (occurrence: None)
  Receive Date: 20080108
  Receipt Date: 20080102
  Transmission Date: 20080703
  Serious: Yes (Death, Hospitalization)
  Sender: FDA-Public Use
  Company Number: US-GENENTECH-253713

PATIENT
  Age: 38 Year
  Sex: Female

DRUGS (1)
  1. EFALIZUMAB [Suspect]
     Indication: GRAFT VERSUS HOST DISEASE
     Dates: start: 20070618, end: 20070806

REACTIONS (3)
  - DEATH [None]
  - LUNG NEOPLASM [None]
  - RESPIRATORY TRACT INFECTION BACTERIAL [None]
